FAERS Safety Report 4652142-3 (Version None)
Quarter: 2005Q2

REPORT INFORMATION
  Report Type: 
  Country: None (occurrence: None)
  Receive Date: 20050504
  Receipt Date: 20050420
  Transmission Date: 20051028
  Serious: Yes (Hospitalization)
  Sender: FDA-Public Use
  Company Number: US-AMGEN-US128869

PATIENT
  Age: 65 Year
  Sex: Female
  Weight: 63.6 kg

DRUGS (2)
  1. PROCRIT [Suspect]
     Indication: ANAEMIA
     Dates: start: 20050301
  2. PROGRAF [Concomitant]

REACTIONS (1)
  - BLOOD POTASSIUM INCREASED [None]
